FAERS Safety Report 23194511 (Version 1)
Quarter: 2023Q4

REPORT INFORMATION
  Report Type: Spontaneous
  Country: US (occurrence: US)
  Receive Date: 20231117
  Receipt Date: 20231117
  Transmission Date: 20240109
  Serious: No
  Sender: FDA-Public Use
  Company Number: US-SA-SAC20231109000272

PATIENT
  Age: 62 Year
  Sex: Female

DRUGS (1)
  1. DUPIXENT [Suspect]
     Active Substance: DUPILUMAB
     Indication: Asthma
     Dosage: 600 MG, 1X
     Route: 058
     Dates: start: 20231104, end: 20231104

REACTIONS (6)
  - Nausea [Recovered/Resolved]
  - Vision blurred [Recovered/Resolved]
  - Eye swelling [Recovered/Resolved]
  - Dizziness [Recovered/Resolved]
  - Injection site pain [Recovered/Resolved]
  - Injection site bruising [Recovered/Resolved]

NARRATIVE: CASE EVENT DATE: 20231104
